FAERS Safety Report 18265998 (Version 1)
Quarter: 2020Q3

REPORT INFORMATION
  Report Type: Spontaneous
  Country: JP (occurrence: JP)
  Receive Date: 20200915
  Receipt Date: 20200915
  Transmission Date: 20201103
  Serious: Yes (Hospitalization, Other)
  Sender: FDA-Public Use
  Company Number: JP-VIIV HEALTHCARE LIMITED-JP2020178427

PATIENT
  Age: 58 Year
  Sex: Male

DRUGS (2)
  1. TIVICAY [Suspect]
     Active Substance: DOLUTEGRAVIR SODIUM
     Dosage: UNK, QD
     Route: 048
     Dates: start: 20200904
  2. TIVICAY [Suspect]
     Active Substance: DOLUTEGRAVIR SODIUM
     Dosage: UNK, QD
     Route: 048

REACTIONS (3)
  - Product dose omission issue [Unknown]
  - Ileus [Unknown]
  - Drug reaction with eosinophilia and systemic symptoms [Unknown]
